FAERS Safety Report 24731267 (Version 1)
Quarter: 2024Q4

REPORT INFORMATION
  Report Type: Spontaneous
  Country: US (occurrence: US)
  Receive Date: 20241213
  Receipt Date: 20241213
  Transmission Date: 20250114
  Serious: No
  Sender: VIVUS
  Company Number: US-VIVUS LLC-2024V1001090

PATIENT
  Age: 71 Year
  Sex: Female
  Weight: 62.652 kg

DRUGS (4)
  1. PANCREAZE [Suspect]
     Active Substance: PANCRELIPASE AMYLASE\PANCRELIPASE LIPASE\PANCRELIPASE PROTEASE
     Indication: Pancreatic failure
     Dosage: 4,200/14,200/ 24,600 USP UNITS, 4 CAPSULES A DAY
     Route: 048
     Dates: start: 202303, end: 202312
  2. PANCREAZE [Suspect]
     Active Substance: PANCRELIPASE AMYLASE\PANCRELIPASE LIPASE\PANCRELIPASE PROTEASE
     Dosage: 4,200/14,200/ 24,600 USP UNITS, 2 CAPSULES A DAY
     Route: 048
     Dates: start: 202408
  3. SYNTHROID [Concomitant]
     Active Substance: LEVOTHYROXINE SODIUM
     Indication: Product used for unknown indication
     Route: 065
  4. BOTOX [Concomitant]
     Active Substance: ONABOTULINUMTOXINA
     Indication: Dystonia
     Route: 065
     Dates: start: 2021

REACTIONS (1)
  - Prescription drug used without a prescription [Not Recovered/Not Resolved]

NARRATIVE: CASE EVENT DATE: 20240801
